FAERS Safety Report 14031224 (Version 3)
Quarter: 2018Q2

REPORT INFORMATION
  Report Type: Spontaneous
  Country: FR (occurrence: FR)
  Receive Date: 20171003
  Receipt Date: 20180424
  Transmission Date: 20180711
  Serious: Yes (Other)
  Sender: FDA-Public Use
  Company Number: FR-MERCK KGAA-2028342

PATIENT
  Age: 53 Year
  Sex: Female

DRUGS (1)
  1. NOVOTHYROX [Suspect]
     Active Substance: LEVOTHYROXINE SODIUM
     Indication: HYPOTHYROIDISM
     Route: 048
     Dates: start: 20170414

REACTIONS (25)
  - Chapped lips [Not Recovered/Not Resolved]
  - Hypertension [Not Recovered/Not Resolved]
  - Dry skin [Unknown]
  - Anger [Unknown]
  - Mood altered [Unknown]
  - Sleep disorder [Unknown]
  - Palpitations [Not Recovered/Not Resolved]
  - Feeling guilty [Unknown]
  - Paraesthesia [Unknown]
  - Eye pruritus [Unknown]
  - Pharyngeal oedema [Not Recovered/Not Resolved]
  - Oesophagitis [Unknown]
  - Paraesthesia oral [Unknown]
  - Heart rate irregular [Unknown]
  - Loss of personal independence in daily activities [Unknown]
  - Memory impairment [Unknown]
  - Fatigue [Unknown]
  - Social avoidant behaviour [Unknown]
  - Emotional distress [Unknown]
  - Skin exfoliation [Not Recovered/Not Resolved]
  - Headache [Not Recovered/Not Resolved]
  - Dry eye [Unknown]
  - Product formulation issue [Not Recovered/Not Resolved]
  - Irritability [Unknown]
  - Malaise [Unknown]

NARRATIVE: CASE EVENT DATE: 201704
